FAERS Safety Report 13390700 (Version 2)
Quarter: 2017Q3

REPORT INFORMATION
  Report Type: Report from Study
  Country: US (occurrence: US)
  Receive Date: 20170331
  Receipt Date: 20170717
  Transmission Date: 20171127
  Serious: No
  Sender: FDA-Public Use
  Company Number: US-AMGEN-USASP2017046323

PATIENT
  Age: 67 Year
  Sex: Male

DRUGS (2)
  1. ENBREL [Suspect]
     Active Substance: ETANERCEPT
     Indication: PSORIATIC ARTHROPATHY
     Dosage: 50 MG, WEEKLY
     Route: 065
  2. ENBREL [Suspect]
     Active Substance: ETANERCEPT
     Dosage: 25 MG, TWICE WEEKLY 3 TO 4 DAYS APART
     Route: 065

REACTIONS (4)
  - Injury associated with device [Unknown]
  - Joint stiffness [Unknown]
  - Accidental exposure to product [Unknown]
  - Drug dose omission [Unknown]

NARRATIVE: CASE EVENT DATE: 201611
